FAERS Safety Report 22311961 (Version 1)
Quarter: 2023Q2

REPORT INFORMATION
  Report Type: Other
  Country: RO (occurrence: RO)
  Receive Date: 20230512
  Receipt Date: 20230512
  Transmission Date: 20230721
  Serious: Yes (Death, Other)
  Sender: FDA-Public Use
  Company Number: RO-CELLTRION INC.-2023RO009678

PATIENT

DRUGS (7)
  1. RITUXIMAB [Suspect]
     Active Substance: RITUXIMAB
     Indication: Diffuse large B-cell lymphoma
     Dosage: RITUXIMAB (375 MG/M2)
  2. PREDNISONE [Suspect]
     Active Substance: PREDNISONE
     Indication: Diffuse large B-cell lymphoma
  3. BENDAMUSTINE [Suspect]
     Active Substance: BENDAMUSTINE
     Indication: Diffuse large B-cell lymphoma
  4. CYCLOPHOSPHAMIDE [Suspect]
     Active Substance: CYCLOPHOSPHAMIDE
     Indication: Diffuse large B-cell lymphoma
  5. DOXORUBICIN [Suspect]
     Active Substance: DOXORUBICIN
     Indication: Diffuse large B-cell lymphoma
  6. POLIVY [Suspect]
     Active Substance: POLATUZUMAB VEDOTIN-PIIQ
     Indication: Diffuse large B-cell lymphoma
     Dosage: UNK
     Dates: start: 202104
  7. VINCRISTINE [Suspect]
     Active Substance: VINCRISTINE
     Indication: Diffuse large B-cell lymphoma

REACTIONS (33)
  - Death [Fatal]
  - Colitis ischaemic [Unknown]
  - Intestinal ischaemia [Unknown]
  - Pneumoperitoneum [Unknown]
  - Arrhythmia [Unknown]
  - Bacterial sepsis [Unknown]
  - Cerebrovascular accident [Unknown]
  - Clostridium colitis [Unknown]
  - Humoral immune defect [Unknown]
  - Septic shock [Unknown]
  - Systemic candida [Unknown]
  - Benign prostatic hyperplasia [Unknown]
  - Diabetic neuropathy [Unknown]
  - Dysstasia [Unknown]
  - Electrolyte imbalance [Unknown]
  - Generalised oedema [Unknown]
  - General physical condition abnormal [Unknown]
  - Hypoalbuminaemia [Unknown]
  - Hypovolaemia [Unknown]
  - Ill-defined disorder [Unknown]
  - Scar [Unknown]
  - Ulcer [Unknown]
  - Abdominal pain [Unknown]
  - Anaemia [Unknown]
  - Blood disorder [Unknown]
  - Candida infection [Unknown]
  - Diarrhoea [Unknown]
  - Gait disturbance [Unknown]
  - Hypertension [Unknown]
  - Inflammation [Unknown]
  - Lymphadenopathy [Unknown]
  - Oedema [Unknown]
  - Product dose omission issue [Unknown]

NARRATIVE: CASE EVENT DATE: 20221201
